FAERS Safety Report 10714233 (Version 1)
Quarter: 2015Q1

REPORT INFORMATION
  Report Type: Spontaneous
  Country: US (occurrence: US)
  Receive Date: 20150115
  Receipt Date: 20150115
  Transmission Date: 20150721
  Serious: Yes (Other)
  Sender: FDA-Public Use
  Company Number: US-ASTELLAS-2014US015576

PATIENT
  Age: 59 Year
  Sex: Male

DRUGS (1)
  1. MYRBETRIQ [Suspect]
     Active Substance: MIRABEGRON
     Indication: PRODUCT USED FOR UNKNOWN INDICATION
     Route: 065
     Dates: start: 20141020

REACTIONS (4)
  - Intentional product use issue [Unknown]
  - Tachycardia [Unknown]
  - Dysuria [Unknown]
  - Urge incontinence [Unknown]

NARRATIVE: CASE EVENT DATE: 20141020
